FAERS Safety Report 10998360 (Version 2)
Quarter: 2015Q2

REPORT INFORMATION
  Report Type: Spontaneous
  Country: NL (occurrence: None)
  Receive Date: 20150406
  Receipt Date: 20150416
  Transmission Date: 20150821
  Serious: Yes (Other)
  Sender: FDA-Public Use
  Company Number: NL-20150007

PATIENT
  Age: 46 Year
  Sex: Female
  Weight: 67 kg

DRUGS (3)
  1. DOTAREM [Suspect]
     Active Substance: GADOTERATE MEGLUMINE
     Indication: NUCLEAR MAGNETIC RESONANCE IMAGING BREAST
     Dosage: 14 ML (14 ML, 1 IN 1 D)
     Dates: start: 20141217, end: 20141217
  2. OXAZEPAM. [Concomitant]
     Active Substance: OXAZEPAM
  3. PROPRANOLOL [Concomitant]
     Active Substance: PROPRANOLOL\PROPRANOLOL HYDROCHLORIDE

REACTIONS (6)
  - Hypersensitivity [None]
  - Presyncope [None]
  - Swelling face [None]
  - Respiratory distress [None]
  - Skin burning sensation [None]
  - Erythema [None]

NARRATIVE: CASE EVENT DATE: 20141217
